FAERS Safety Report 9269911 (Version 2)
Quarter: 2013Q2

REPORT INFORMATION
  Report Type: Spontaneous
  Country: BR (occurrence: BR)
  Receive Date: 20130503
  Receipt Date: 20130530
  Transmission Date: 20140414
  Serious: Yes (Other)
  Sender: FDA-Public Use
  Company Number: BR-GALDERMA-BR13001364

PATIENT
  Age: 67 Year
  Sex: Female
  Weight: 70 kg

DRUGS (6)
  1. DIFFERIN [Suspect]
     Indication: OFF LABEL USE
     Dosage: 0.3%
     Route: 061
     Dates: start: 20130402, end: 20130420
  2. GINKGO BILOBA [Concomitant]
     Indication: NERVOUS SYSTEM DISORDER
     Route: 048
     Dates: start: 20121025
  3. GABAPENTINA [Concomitant]
     Indication: NEUROPATHY PERIPHERAL
     Route: 048
  4. ATENOLOL + CLORTALIDONA [Concomitant]
     Indication: HYPERTENSION
     Dosage: 50+12,5 MG
     Route: 048
  5. ATENOLOL + CLORTALIDONA [Concomitant]
     Route: 048
  6. PHOTODERM FPS100 [Concomitant]
     Indication: THERAPEUTIC SKIN CARE TOPICAL
     Route: 061

REACTIONS (7)
  - Keratitis [Recovering/Resolving]
  - Corneal lesion [Recovering/Resolving]
  - Eye pain [Recovered/Resolved]
  - Eye irritation [Recovered/Resolved]
  - Ocular hyperaemia [Recovered/Resolved]
  - Dermatitis contact [Recovered/Resolved]
  - Off label use [Recovered/Resolved]
